FAERS Safety Report 8879584 (Version 3)
Quarter: 2016Q4

REPORT INFORMATION
  Report Type: Spontaneous
  Country: JP (occurrence: JP)
  Receive Date: 20121031
  Receipt Date: 20161012
  Transmission Date: 20170207
  Serious: Yes (Other)
  Sender: FDA-Public Use
  Company Number: JP-OTSUKA-JP-2012-16665

PATIENT
  Age: 58 Year
  Sex: Male

DRUGS (3)
  1. ASPIRIN. [Concomitant]
     Active Substance: ASPIRIN
     Indication: PRODUCT USED FOR UNKNOWN INDICATION
     Dosage: UNK
     Route: 065
  2. PLETAAL OD TABLETS 50MG [Suspect]
     Active Substance: CILOSTAZOL
     Indication: CEREBRAL ARTERY EMBOLISM
     Dosage: 200 MG, QD
     Route: 048
  3. PLETAAL POWDER 20% [Suspect]
     Active Substance: CILOSTAZOL
     Indication: CEREBRAL ARTERY EMBOLISM
     Dosage: 200 MG, UNK
     Route: 048

REACTIONS (2)
  - Carotid artery dissection [Unknown]
  - Carotid artery occlusion [Recovering/Resolving]
